FAERS Safety Report 19523285 (Version 1)
Quarter: 2021Q3

REPORT INFORMATION
  Report Type: Spontaneous
  Country: US (occurrence: US)
  Receive Date: 20210712
  Receipt Date: 20210712
  Transmission Date: 20211014
  Serious: Yes (Other)
  Sender: FDA-Public Use
  Company Number: US-PFIZER INC-2021799637

PATIENT
  Sex: Female

DRUGS (3)
  1. EXEMESTANE. [Suspect]
     Active Substance: EXEMESTANE
     Indication: BREAST CANCER
     Dosage: UNK
  2. LETROZOLE. [Concomitant]
     Active Substance: LETROZOLE
     Dosage: UNK
  3. TAMOXIFEN [Concomitant]
     Active Substance: TAMOXIFEN
     Dosage: UNK

REACTIONS (9)
  - Depression [Unknown]
  - Mood swings [Unknown]
  - Arthralgia [Unknown]
  - Abdominal pain upper [Unknown]
  - Flank pain [Unknown]
  - Anxiety [Unknown]
  - Diarrhoea [Unknown]
  - Diverticulitis [Unknown]
  - Suicidal ideation [Unknown]
